FAERS Safety Report 22218991 (Version 1)
Quarter: 2023Q2

REPORT INFORMATION
  Report Type: Report from Study
  Country: DE (occurrence: DE)
  Receive Date: 20230417
  Receipt Date: 20230417
  Transmission Date: 20230721
  Serious: Yes (Other)
  Sender: FDA-Public Use
  Company Number: DE-MYLANLABS-2023M1039692

PATIENT

DRUGS (16)
  1. AZATHIOPRINE [Suspect]
     Active Substance: AZATHIOPRINE
     Indication: Protein deficiency
     Dosage: UNK
     Route: 065
  2. AZATHIOPRINE [Suspect]
     Active Substance: AZATHIOPRINE
     Indication: Immune system disorder
  3. AZATHIOPRINE [Suspect]
     Active Substance: AZATHIOPRINE
     Indication: Gene mutation
  4. FLUDARABINE [Suspect]
     Active Substance: FLUDARABINE PHOSPHATE
     Indication: Bone marrow conditioning regimen
     Dosage: 200 MILLIGRAM/SQ. METER
     Route: 065
  5. CYCLOSPORINE [Suspect]
     Active Substance: CYCLOSPORINE
     Indication: Prophylaxis against graft versus host disease
     Dosage: UNK
     Route: 065
  6. METHOTREXATE [Suspect]
     Active Substance: METHOTREXATE
     Indication: Prophylaxis against graft versus host disease
     Dosage: UNK
     Route: 065
  7. TACROLIMUS [Suspect]
     Active Substance: TACROLIMUS
     Indication: Protein deficiency
     Dosage: UNK
     Route: 065
  8. TACROLIMUS [Suspect]
     Active Substance: TACROLIMUS
     Indication: Immune system disorder
  9. TACROLIMUS [Suspect]
     Active Substance: TACROLIMUS
     Indication: Gene mutation
  10. SIROLIMUS [Suspect]
     Active Substance: SIROLIMUS
     Indication: Protein deficiency
     Dosage: UNK
     Route: 065
  11. SIROLIMUS [Suspect]
     Active Substance: SIROLIMUS
     Indication: Immune system disorder
  12. SIROLIMUS [Suspect]
     Active Substance: SIROLIMUS
     Indication: Gene mutation
  13. ABATACEPT [Suspect]
     Active Substance: ABATACEPT
     Indication: Immunomodulatory therapy
     Dosage: 15 MILLIGRAM/KILOGRAM, BIWEEKLY
     Route: 042
  14. TREOSULFAN [Suspect]
     Active Substance: TREOSULFAN
     Indication: Bone marrow conditioning regimen
     Dosage: 42 GRAM PER SQUARE METRE, 42 G/M2
     Route: 065
  15. THIOTEPA [Suspect]
     Active Substance: THIOTEPA
     Indication: Bone marrow conditioning regimen
     Dosage: 10 MILLIGRAM/KILOGRAM
     Route: 065
  16. ATG-FRESENIUS [Suspect]
     Active Substance: LAPINE T-LYMPHOCYTE IMMUNE GLOBULIN
     Indication: Immunoglobulin therapy
     Dosage: UNK
     Route: 065

REACTIONS (2)
  - Adenovirus infection [Unknown]
  - Drug ineffective [Unknown]
